FAERS Safety Report 13910031 (Version 1)
Quarter: 2017Q3

REPORT INFORMATION
  Report Type: Spontaneous
  Country: HK (occurrence: HK)
  Receive Date: 20170828
  Receipt Date: 20170828
  Transmission Date: 20171127
  Serious: Yes (Death)
  Sender: FDA-Public Use
  Company Number: PHHY2017HK126122

PATIENT
  Age: 67 Year

DRUGS (1)
  1. ZYKADIA [Suspect]
     Active Substance: CERITINIB
     Indication: PRODUCT USED FOR UNKNOWN INDICATION
     Dosage: 2 (300 MG) AND 3 (450 MG) TABLETS ALTERNATE DAYS
     Route: 065
     Dates: start: 201512

REACTIONS (2)
  - Metastases to central nervous system [Fatal]
  - Cerebral haemorrhage [Fatal]
